FAERS Safety Report 17052951 (Version 1)
Quarter: 2019Q4

REPORT INFORMATION
  Report Type: Report from Study
  Country: None (occurrence: US)
  Receive Date: 20191120
  Receipt Date: 20191120
  Transmission Date: 20200122
  Serious: Yes (Other)
  Sender: FDA-Public Use
  Company Number: US-ABBVIE-19K-163-2961558-00

PATIENT
  Age: 73 Year
  Sex: Female

DRUGS (1)
  1. HUMIRA [Suspect]
     Active Substance: ADALIMUMAB
     Indication: RHEUMATOID ARTHRITIS
     Dosage: CITRATE FREE
     Route: 058
     Dates: start: 201907, end: 20190909

REACTIONS (6)
  - Fall [Recovering/Resolving]
  - Haemoglobin decreased [Not Recovered/Not Resolved]
  - Hip fracture [Recovering/Resolving]
  - Post procedural haemorrhage [Not Recovered/Not Resolved]
  - Clumsiness [Unknown]
  - Upper limb fracture [Recovering/Resolving]

NARRATIVE: CASE EVENT DATE: 2019
